FAERS Safety Report 23210866 (Version 2)
Quarter: 2024Q2

REPORT INFORMATION
  Report Type: Spontaneous
  Country: CL (occurrence: CL)
  Receive Date: 20231121
  Receipt Date: 20240531
  Transmission Date: 20240716
  Serious: Yes (Other)
  Sender: FDA-Public Use
  Company Number: CL-PFIZER INC-PV202300182454

PATIENT
  Age: 68 Year
  Sex: Female

DRUGS (2)
  1. IBRANCE [Suspect]
     Active Substance: PALBOCICLIB
     Indication: Breast cancer metastatic
     Dosage: 125 MG, CYCLIC (1 TABLET DAILY)
     Route: 048
     Dates: start: 202309, end: 202404
  2. FULVESTRANT [Concomitant]
     Active Substance: FULVESTRANT
     Dosage: 1 INJECTION, MONTHLY
     Dates: start: 202309

REACTIONS (4)
  - Ilium fracture [Unknown]
  - Fatigue [Unknown]
  - Constipation [Unknown]
  - Neoplasm progression [Unknown]
